FAERS Safety Report 25890594 (Version 1)
Quarter: 2025Q4

REPORT INFORMATION
  Report Type: Spontaneous
  Country: US (occurrence: US)
  Receive Date: 20251007
  Receipt Date: 20251007
  Transmission Date: 20260118
  Serious: No
  Sender: AMARIN
  Company Number: US-Amarin Pharma  Inc-2025AMR000527

PATIENT
  Age: 60 Year
  Sex: Male

DRUGS (2)
  1. VASCEPA [Suspect]
     Active Substance: ICOSAPENT ETHYL
     Indication: Blood triglycerides
     Dates: start: 2023
  2. VASCEPA [Suspect]
     Active Substance: ICOSAPENT ETHYL

REACTIONS (2)
  - Poor quality product administered [Unknown]
  - Product physical issue [Unknown]

NARRATIVE: CASE EVENT DATE: 20240901
